FAERS Safety Report 6342588-X (Version None)
Quarter: 2009Q3

REPORT INFORMATION
  Report Type: 
  Country: None (occurrence: None)
  Receive Date: 20090908
  Receipt Date: 20051114
  Transmission Date: 20100115
  Serious: No
  Sender: FDA-Public Use
  Company Number: JP-ROCHE-426027

PATIENT
  Sex: Female
  Weight: 2.7 kg

DRUGS (2)
  1. OSELTAMIVIR [Suspect]
     Dates: start: 20050311, end: 20050312
  2. ASTHMA MEDICATIONS NOS [Concomitant]
     Indication: COUGH
     Dates: start: 20050311, end: 20050312

REACTIONS (1)
  - NORMAL NEWBORN [None]
